FAERS Safety Report 11077898 (Version 1)
Quarter: 2015Q2

REPORT INFORMATION
  Report Type: Spontaneous
  Country: US (occurrence: None)
  Receive Date: 20150429
  Receipt Date: 20150429
  Transmission Date: 20150821
  Serious: Yes (Death, Life-Threatening, Hospitalization)
  Sender: FDA-Public Use
  Company Number: None

PATIENT
  Age: 70 Year
  Sex: Female
  Weight: 57.15 kg

DRUGS (2)
  1. AVASTIN [Suspect]
     Active Substance: BEVACIZUMAB
     Indication: OVARIAN CANCER STAGE III
     Dates: start: 20141015, end: 20150109
  2. LEVOTHYROXINE [Concomitant]
     Active Substance: LEVOTHYROXINE

REACTIONS (14)
  - Renal impairment [None]
  - Cardiomyopathy [None]
  - Vomiting [None]
  - Bedridden [None]
  - Increased bronchial secretion [None]
  - Cyanosis [None]
  - Blood pressure decreased [None]
  - Dyspnoea exertional [None]
  - Cardiac failure [None]
  - Pulmonary oedema [None]
  - Atrial fibrillation [None]
  - Abdominal distension [None]
  - Discomfort [None]
  - Asthenia [None]

NARRATIVE: CASE EVENT DATE: 20150122
